FAERS Safety Report 11515380 (Version 1)
Quarter: 2015Q3

REPORT INFORMATION
  Report Type: Report from Study
  Country: US (occurrence: US)
  Receive Date: 20150916
  Receipt Date: 20150916
  Transmission Date: 20151125
  Serious: No
  Sender: FDA-Public Use
  Company Number: PHEH2015US017920

PATIENT
  Age: 71 Year
  Sex: Female

DRUGS (1)
  1. GLEEVEC [Suspect]
     Active Substance: IMATINIB MESYLATE
     Indication: HYPEREOSINOPHILIC SYNDROME
     Dosage: 100 MG, QD
     Route: 048
     Dates: start: 20150818

REACTIONS (2)
  - Abdominal pain upper [Unknown]
  - Gastrointestinal tract irritation [Unknown]

NARRATIVE: CASE EVENT DATE: 20150819
